FAERS Safety Report 8339733-3 (Version None)
Quarter: 2012Q2

REPORT INFORMATION
  Report Type: 
  Country: None (occurrence: None)
  Receive Date: 20120507
  Receipt Date: 20120501
  Transmission Date: 20120825
  Serious: Yes (Hospitalization, Other)
  Sender: FDA-Public Use
  Company Number: JP-SANOFI-AVENTIS-2012SA019683

PATIENT
  Age: 71 Year
  Sex: Male
  Weight: 48 kg

DRUGS (28)
  1. TS-1 [Suspect]
     Indication: GASTRIC CANCER
     Route: 048
     Dates: start: 20120210, end: 20120216
  2. TS-1 [Suspect]
     Route: 048
     Dates: start: 20120329, end: 20120404
  3. CALCIUM FOLINATE [Suspect]
     Indication: GASTRIC CANCER
     Route: 048
     Dates: start: 20120229, end: 20120306
  4. LANSOPRAZOLE [Concomitant]
     Dates: start: 20120313
  5. OXALIPLATIN [Suspect]
     Dosage: FORM: INJECTION
     Route: 041
     Dates: start: 20120329, end: 20120329
  6. ALL OTHER THERAPEUTIC PRODUCTS [Concomitant]
     Dates: start: 20120305
  7. HIRUDOID [Concomitant]
     Dates: start: 20120306
  8. SOLUTIONS FOR PARENTERAL NUTRITION [Concomitant]
     Dates: start: 20120306, end: 20120310
  9. TS-1 [Suspect]
     Route: 048
     Dates: start: 20120229, end: 20120306
  10. BORRAZA-G [Concomitant]
     Dates: start: 20120305
  11. PRIMPERAN TAB [Concomitant]
     Dates: start: 20120309
  12. BLOOD SUBSTITUTES AND PLASMA PROTEIN FRACTION [Concomitant]
     Indication: FLUID REPLACEMENT
     Dates: start: 20120310
  13. RINDERON-V [Concomitant]
     Dates: start: 20120306
  14. CEFEPIME HYDROCHLORIDE [Concomitant]
     Dates: start: 20120311
  15. LAXOBERON [Concomitant]
     Dosage: EXCEPT SYRUP
     Dates: start: 20120404, end: 20120406
  16. OXALIPLATIN [Suspect]
     Dosage: FORM: INJECTION85 MG/M2
     Route: 041
     Dates: start: 20120229, end: 20120229
  17. MAGNESIUM SULFATE [Concomitant]
     Route: 048
     Dates: start: 20120213
  18. FENTANYL CITRATE [Concomitant]
     Dosage: TAPE (INCLUDING POULTICE)
     Dates: start: 20120312
  19. CALCIUM FOLINATE [Suspect]
     Route: 048
     Dates: start: 20120210, end: 20120216
  20. CALCIUM FOLINATE [Suspect]
     Route: 048
     Dates: start: 20120329, end: 20120404
  21. OXYCONTIN [Concomitant]
     Dates: start: 20120223, end: 20120311
  22. LOXOPROFEN SODIUM [Concomitant]
     Dates: start: 20120130
  23. OXINORM [Concomitant]
     Dosage: EXCEPT (DPO)
     Dates: start: 20120220
  24. PROCHLORPERAZINE [Concomitant]
     Dates: start: 20120220
  25. OXALIPLATIN [Suspect]
     Indication: GASTRIC CANCER
     Dosage: FORM: INJECTION85 MG/M2
     Route: 041
     Dates: start: 20120210, end: 20120210
  26. PROTECADIN [Concomitant]
     Dates: start: 20120127
  27. BORRAZA-G [Concomitant]
     Dates: start: 20120305
  28. ALPRAZOLAM [Concomitant]
     Dates: start: 20120309

REACTIONS (13)
  - RECTAL ULCER [None]
  - DECREASED APPETITE [None]
  - HAEMOGLOBIN DECREASED [None]
  - GASTROINTESTINAL OEDEMA [None]
  - DIARRHOEA [None]
  - ABDOMINAL PAIN [None]
  - VOMITING [None]
  - STOMATITIS [None]
  - NEUTROPENIA [None]
  - NAUSEA [None]
  - CONSTIPATION [None]
  - WHITE BLOOD CELL COUNT DECREASED [None]
  - RASH MACULO-PAPULAR [None]
